FAERS Safety Report 5673037-2 (Version None)
Quarter: 2008Q1

REPORT INFORMATION
  Report Type: 
  Country: None (occurrence: None)
  Receive Date: 20080319
  Receipt Date: 20080201
  Transmission Date: 20080703
  Serious: No
  Sender: FDA-Public Use
  Company Number: US-ASTRAZENECA-2008UW02343

PATIENT
  Age: 63 Year
  Sex: Male
  Weight: 65.3 kg

DRUGS (4)
  1. SYMBICORT [Suspect]
     Indication: ASTHMA
     Dosage: 80/4.5 UG - 2 PUFFS BID
     Route: 055
     Dates: start: 20071201
  2. THEOPHYLLINE [Concomitant]
  3. TERAZOSIN HCL [Concomitant]
  4. NATURAL SUPPLEMENTS [Concomitant]

REACTIONS (3)
  - ASTHENIA [None]
  - BLOOD PRESSURE INCREASED [None]
  - DIZZINESS [None]
